FAERS Safety Report 5004844-7 (Version None)
Quarter: 2006Q2

REPORT INFORMATION
  Report Type: 
  Country: None (occurrence: None)
  Receive Date: 20060517
  Receipt Date: 20060516
  Transmission Date: 20061013
  Serious: Yes (Hospitalization)
  Sender: FDA-Public Use
  Company Number: AU-MERCK-0605AUS00168

PATIENT
  Age: 65 Year
  Sex: Male

DRUGS (7)
  1. FOSAMAX [Suspect]
     Indication: OSTEOPOROSIS
     Route: 048
     Dates: start: 19990101
  2. FOSAMAX [Suspect]
     Route: 048
     Dates: end: 20060501
  3. AMLODIPINE BESYLATE [Concomitant]
     Route: 065
  4. OXYCODONE HYDROCHLORIDE [Concomitant]
     Route: 065
  5. ESOMEPRAZOLE MAGNESIUM [Concomitant]
     Route: 065
  6. CALCITRIOL [Concomitant]
     Route: 065
  7. PREGABALIN [Concomitant]
     Route: 065

REACTIONS (2)
  - LUNG NEOPLASM MALIGNANT [None]
  - SPINAL FRACTURE [None]
